FAERS Safety Report 12733986 (Version 1)
Quarter: 2016Q3

REPORT INFORMATION
  Report Type: Spontaneous
  Country: US (occurrence: US)
  Receive Date: 20160912
  Receipt Date: 20160912
  Transmission Date: 20161109
  Serious: No
  Sender: FDA-Public Use
  Company Number: US-ASTRAZENECA-2016SE93712

PATIENT
  Age: 772 Month
  Sex: Male
  Weight: 99.8 kg

DRUGS (7)
  1. Q-NASAL [Concomitant]
     Indication: RHINITIS
     Route: 061
     Dates: start: 2016
  2. PULMICORT RESPULES [Suspect]
     Active Substance: BUDESONIDE
     Indication: NASAL POLYPS
     Dosage: 0.5MG UNKNOWN
     Route: 055
     Dates: start: 201608
  3. PULMICORT RESPULES [Suspect]
     Active Substance: BUDESONIDE
     Indication: ASTHMA
     Dosage: 0.5MG UNKNOWN
     Route: 055
     Dates: start: 201608
  4. PULMICORT RESPULES [Suspect]
     Active Substance: BUDESONIDE
     Indication: NASAL POLYPS
     Route: 055
     Dates: end: 2012
  5. XOLAIR [Concomitant]
     Active Substance: OMALIZUMAB
     Indication: ASTHMA
     Dosage: 300 MG MONTHLY
     Dates: start: 2012
  6. PULMICORT RESPULES [Suspect]
     Active Substance: BUDESONIDE
     Indication: ASTHMA
     Route: 055
     Dates: end: 2012
  7. ADVAIR HFA [Concomitant]
     Active Substance: FLUTICASONE PROPIONATE\SALMETEROL XINAFOATE
     Dates: start: 2008

REACTIONS (3)
  - Nasal polyps [Not Recovered/Not Resolved]
  - Off label use [Unknown]
  - Product use issue [Unknown]

NARRATIVE: CASE EVENT DATE: 201608
